FAERS Safety Report 21778256 (Version 1)
Quarter: 2022Q4

REPORT INFORMATION
  Report Type: Report from Study
  Country: US (occurrence: None)
  Receive Date: 20221226
  Receipt Date: 20221226
  Transmission Date: 20230112
  Serious: Yes (Other)
  Sender: FDA-Public Use
  Company Number: US-ROCHE-3246958

PATIENT
  Sex: Female
  Weight: 87.7 kg

DRUGS (3)
  1. VENETOCLAX [Suspect]
     Active Substance: VENETOCLAX
     Indication: Chronic lymphocytic leukaemia
     Dosage: FROM 20 MG UP TO A FINAL DOSE OF 400 MG?HER CYCLE 16 RESTAGE ON 04/OCT/2021
     Route: 048
  2. OBINUTUZUMAB [Suspect]
     Active Substance: OBINUTUZUMAB
     Indication: Chronic lymphocytic leukaemia
     Dosage: 100 MG ON CYCLE 1 DAY 1, 900 MG ON CYCLE 1 DAY 2, AND THEN 1,000 MG ON CYCLE 1 DAYS 8, 15, AND DAY 1
     Route: 042
  3. ACALABRUTINIB [Suspect]
     Active Substance: ACALABRUTINIB
     Indication: Chronic lymphocytic leukaemia
     Dosage: HER CYCLE 16 RESTAGE ON 04/OCT/2021
     Route: 048

REACTIONS (4)
  - Metastasis [Unknown]
  - Richter^s syndrome [Unknown]
  - Invasive ductal breast carcinoma [Unknown]
  - Breast cancer [Unknown]

NARRATIVE: CASE EVENT DATE: 20220629
